FAERS Safety Report 19935459 (Version 1)
Quarter: 2021Q4

REPORT INFORMATION
  Report Type: Spontaneous
  Country: US (occurrence: US)
  Receive Date: 20211008
  Receipt Date: 20211008
  Transmission Date: 20220303
  Serious: No
  Sender: FDA-Public Use
  Company Number: US-SA-SAC20211006001053

PATIENT
  Age: 58 Year
  Sex: Female

DRUGS (2)
  1. DUPIXENT [Suspect]
     Active Substance: DUPILUMAB
     Indication: Dermatitis atopic
     Dosage: 300 MG, QOW
     Route: 058
     Dates: start: 20210720
  2. ESTROGENS [Concomitant]
     Active Substance: ESTROGENS

REACTIONS (5)
  - Pruritus [Not Recovered/Not Resolved]
  - Drug ineffective [Unknown]
  - Discomfort [Not Recovered/Not Resolved]
  - Middle insomnia [Not Recovered/Not Resolved]
  - Scratch [Not Recovered/Not Resolved]
